FAERS Safety Report 10009612 (Version 1)
Quarter: 2014Q1

REPORT INFORMATION
  Report Type: Spontaneous
  Country: US (occurrence: US)
  Receive Date: 20140312
  Receipt Date: 20140312
  Transmission Date: 20141002
  Serious: No
  Sender: FDA-Public Use
  Company Number: US-INCYTE CORPORATION-2012IN002137

PATIENT
  Age: 85 Year
  Sex: Female

DRUGS (10)
  1. JAKAFI [Suspect]
     Indication: MYELOFIBROSIS
     Dosage: 10 MG, BID
     Route: 048
     Dates: start: 20121006
  2. LASIX [Concomitant]
  3. METFORMIN [Concomitant]
  4. TRILIPIX [Concomitant]
  5. LOTREL [Concomitant]
  6. DETROL [Concomitant]
  7. METANX [Concomitant]
  8. PRILOSEC [Concomitant]
  9. ALLOPURINOL [Concomitant]
  10. BABY ASPIRIN [Concomitant]

REACTIONS (1)
  - Oedema [Unknown]
